FAERS Safety Report 5953668-2 (Version None)
Quarter: 2008Q4

REPORT INFORMATION
  Report Type: 
  Country: None (occurrence: None)
  Receive Date: 20081114
  Receipt Date: 20081111
  Transmission Date: 20090506
  Serious: Yes (Other)
  Sender: FDA-Public Use
  Company Number: D0058852A

PATIENT
  Age: 47 Year
  Sex: Female
  Weight: 98 kg

DRUGS (2)
  1. ELONTRIL [Suspect]
     Indication: DEPRESSION
     Dosage: 150MG PER DAY
     Route: 065
     Dates: start: 20080904, end: 20081015
  2. OMEPRAZOLE [Concomitant]
     Dosage: 20MG PER DAY
     Route: 048
     Dates: start: 20080915, end: 20081015

REACTIONS (8)
  - ABDOMINAL PAIN [None]
  - AGGRESSION [None]
  - CRYING [None]
  - DEPRESSION [None]
  - FLATULENCE [None]
  - IRRITABILITY [None]
  - MYALGIA [None]
  - WEIGHT INCREASED [None]
